FAERS Safety Report 24015818 (Version 3)
Quarter: 2025Q2

REPORT INFORMATION
  Report Type: Report from Study
  Country: US (occurrence: US)
  Receive Date: 20240626
  Receipt Date: 20250418
  Transmission Date: 20250716
  Serious: Yes (Other)
  Sender: ELI LILLY AND COMPANY
  Company Number: US-ELI_LILLY_AND_COMPANY-US202406016994

PATIENT
  Age: 67 Year
  Sex: Male

DRUGS (1)
  1. OLUMIANT [Suspect]
     Active Substance: BARICITINIB
     Indication: Alopecia areata
     Route: 065
     Dates: start: 2024

REACTIONS (3)
  - Prostate cancer [Unknown]
  - Intervertebral disc protrusion [Unknown]
  - Alopecia areata [Unknown]
